FAERS Safety Report 15155711 (Version 6)
Quarter: 2024Q4

REPORT INFORMATION
  Report Type: Spontaneous
  Country: BG (occurrence: BG)
  Receive Date: 20180717
  Receipt Date: 20241011
  Transmission Date: 20250115
  Serious: Yes (Death, Other)
  Sender: MYLAN
  Company Number: BG-EMA-DD-20180413-PBISHTP-110226

PATIENT
  Age: 67 Year
  Sex: Male

DRUGS (11)
  1. DOCETAXEL [Suspect]
     Active Substance: DOCETAXEL
     Indication: Prostate cancer
     Dosage: UNK, IT STARTS AFTER A NEW TUMOR MARKER RISES
     Route: 042
  2. BICALUTAMIDE [Suspect]
     Active Substance: BICALUTAMIDE
     Indication: Prostate cancer
     Dosage: USED AS INITIAL TREATMENT
     Route: 065
  3. BICALUTAMIDE [Suspect]
     Active Substance: BICALUTAMIDE
     Indication: Adenocarcinoma
  4. MITOXANTRONE [Suspect]
     Active Substance: MITOXANTRONE HYDROCHLORIDE
     Indication: Prostate cancer
     Dosage: UNK
     Route: 042
     Dates: start: 2016
  5. ENZALUTAMIDE [Suspect]
     Active Substance: ENZALUTAMIDE
     Indication: Prostate cancer
     Dosage: 160 MG, QD, 160 MILLIGRAM DAILY;
     Route: 042
     Dates: start: 2015
  6. DENOSUMAB [Suspect]
     Active Substance: DENOSUMAB
     Indication: Prostate cancer
     Dosage: USED AS INITIAL TREATMENT
     Route: 042
  7. DENOSUMAB [Suspect]
     Active Substance: DENOSUMAB
     Indication: Adenocarcinoma
  8. RADIUM RA-223 DICHLORIDE [Suspect]
     Active Substance: RADIUM RA-223 DICHLORIDE
     Indication: Prostate cancer
     Dosage: A TOTAL OF 35.2 MBQ (55 KBQ / KG) AND AN AVERAGE OF 8.8 MBQ OF APPLICATION
     Route: 042
     Dates: start: 20170425, end: 20170719
  9. RADIUM RA-223 DICHLORIDE [Suspect]
     Active Substance: RADIUM RA-223 DICHLORIDE
     Dosage: 8.8MBQ PER
     Route: 065
  10. RADIUM RA-223 DICHLORIDE [Suspect]
     Active Substance: RADIUM RA-223 DICHLORIDE
     Dosage: 8.8MBQ PER
     Route: 065
  11. GONADORELIN [Suspect]
     Active Substance: GONADORELIN
     Indication: Adenocarcinoma
     Dosage: UNK
     Route: 065

REACTIONS (7)
  - Death [Fatal]
  - Prostate cancer recurrent [Unknown]
  - Prostate cancer [Unknown]
  - Disease progression [Unknown]
  - Thrombocytopenia [Recovered/Resolved]
  - Anaemia [Recovered/Resolved]
  - Drug ineffective [Unknown]

NARRATIVE: CASE EVENT DATE: 20170701
